FAERS Safety Report 4537390-5 (Version None)
Quarter: 2004Q4

REPORT INFORMATION
  Report Type: 
  Country: None (occurrence: None)
  Receive Date: 20041216
  Receipt Date: 20040129
  Transmission Date: 20050328
  Serious: Yes (Other)
  Sender: FDA-Public Use
  Company Number: HQWYE752530JAN04

PATIENT
  Age: 69 Year
  Sex: Female
  Weight: 64.47 kg

DRUGS (6)
  1. EFFEXOR XR [Suspect]
     Indication: DEMENTIA ALZHEIMER'S TYPE
     Dosage: 37.5 MG 1X PER 1 DAY, ORAL
     Route: 048
     Dates: start: 20040124
  2. ARICEPT [Concomitant]
  3. LEXAPRO [Concomitant]
  4. ALPRAZOLAM [Concomitant]
  5. HUMALOG [Concomitant]
  6. LANTUS [Concomitant]

REACTIONS (3)
  - AGITATION [None]
  - BLOOD GLUCOSE INCREASED [None]
  - CONFUSIONAL STATE [None]
